FAERS Safety Report 5350956-8 (Version None)
Quarter: 2007Q2

REPORT INFORMATION
  Report Type: 
  Country: None (occurrence: None)
  Receive Date: 20070608
  Receipt Date: 20070531
  Transmission Date: 20071010
  Serious: Yes (Death, Other)
  Sender: FDA-Public Use
  Company Number: FR-PURDUE-GBR_2007_0003024

PATIENT
  Sex: Female

DRUGS (1)
  1. OXYCONTIN TABLETS 10 MG [Suspect]
     Indication: DRUG USE FOR UNKNOWN INDICATION
     Dosage: 10 MG, DAILY
     Route: 048

REACTIONS (3)
  - BRONCHIAL SECRETION RETENTION [None]
  - RESPIRATORY FAILURE [None]
  - SOPOR [None]
